FAERS Safety Report 9486546 (Version 4)
Quarter: 2013Q4

REPORT INFORMATION
  Report Type: Spontaneous
  Country: JP (occurrence: JP)
  Receive Date: 20130829
  Receipt Date: 20131024
  Transmission Date: 20140711
  Serious: Yes (Hospitalization)
  Sender: FDA-Public Use
  Company Number: JP-EISAI INC-E7389-04140-SPO-JP

PATIENT
  Age: 66 Year
  Sex: Female

DRUGS (5)
  1. HALAVEN [Suspect]
     Indication: BREAST CANCER RECURRENT
     Dosage: 1.1 MG/M2
     Route: 041
     Dates: start: 20130520
  2. HALAVEN [Suspect]
     Indication: METASTASES TO LUNG
  3. GRAN FILGRASTIM (GENETICAL RECOMBINATION) [Concomitant]
     Indication: PROPHYLAXIS
     Route: 041
     Dates: start: 20130606, end: 20130606
  4. GRAN FILGRASTIM (GENETICAL RECOMBINATION) [Concomitant]
     Route: 041
     Dates: start: 20130624, end: 20130624
  5. GRAN FILGRASTIM (GENETICAL RECOMBINATION) [Concomitant]
     Route: 041
     Dates: start: 20130812, end: 20130812

REACTIONS (1)
  - Interstitial lung disease [Recovering/Resolving]
